FAERS Safety Report 8251266-1 (Version None)
Quarter: 2012Q2

REPORT INFORMATION
  Report Type: 
  Country: None (occurrence: None)
  Receive Date: 20120402
  Receipt Date: 20120327
  Transmission Date: 20120825
  Serious: Yes (Other)
  Sender: FDA-Public Use
  Company Number: JP-ASTELLAS-2012JP001609

PATIENT
  Sex: Male
  Weight: 50.9 kg

DRUGS (9)
  1. ALENDRONATE SODIUM [Concomitant]
     Indication: EOSINOPHILIC PNEUMONIA CHRONIC
     Dosage: 35 MG, WEEKLY
     Route: 048
     Dates: start: 20111202
  2. PREDNISOLONE [Concomitant]
     Indication: EOSINOPHILIC PNEUMONIA CHRONIC
     Dosage: 10 MG, UID/QD
     Route: 048
     Dates: start: 20111202
  3. ACETAMINOPHEN [Concomitant]
     Indication: HEADACHE
     Dosage: 400 MG/DAY, PRN
     Route: 048
     Dates: start: 20120210, end: 20120302
  4. ITRACONAZOLE [Concomitant]
     Indication: BRONCHOPULMONARY ASPERGILLOSIS
     Dosage: 200 MG, UID/QD
     Route: 048
     Dates: start: 20101202
  5. LANSOPRAZOLE [Concomitant]
     Indication: EOSINOPHILIC PNEUMONIA CHRONIC
     Dosage: 15 MG, UID/QD
     Route: 048
     Dates: start: 20111202
  6. FUNGUARD [Suspect]
     Indication: BRONCHOPULMONARY ASPERGILLOSIS
     Dosage: 150 MG, UID/QD
     Route: 041
     Dates: start: 20120216, end: 20120216
  7. COTRIM [Concomitant]
     Indication: EOSINOPHILIC PNEUMONIA CHRONIC
     Dosage: 450 MG, UID/QD
     Route: 048
     Dates: start: 20111202
  8. LEVOFLOXACIN [Concomitant]
     Indication: PNEUMONIA
     Dosage: 500 MG, UID/QD
     Route: 048
     Dates: start: 20120202, end: 20120314
  9. ZOSYN [Concomitant]
     Indication: PNEUMONIA
     Dosage: 4 G, QID
     Route: 041
     Dates: start: 20120203, end: 20120302

REACTIONS (1)
  - TREMOR [None]
